FAERS Safety Report 23751979 (Version 1)
Quarter: 2024Q2

REPORT INFORMATION
  Report Type: Spontaneous
  Country: US (occurrence: None)
  Receive Date: 20240417
  Receipt Date: 20240417
  Transmission Date: 20240715
  Serious: Yes (Other)
  Sender: FDA-Public Use
  Company Number: None

PATIENT
  Age: 24 Year
  Sex: Female
  Weight: 70.4 kg

DRUGS (2)
  1. VIVITROL [Suspect]
     Active Substance: NALTREXONE
     Indication: Alcohol use disorder
     Dosage: OTHER FREQUENCY : MONTHLY;?
     Route: 030
     Dates: start: 20240415
  2. VIVITROL [Suspect]
     Active Substance: NALTREXONE
     Indication: Drug use disorder

REACTIONS (10)
  - Injection site pain [None]
  - Nausea [None]
  - Dizziness [None]
  - Headache [None]
  - Rash [None]
  - Malaise [None]
  - Intentional overdose [None]
  - Suicide attempt [None]
  - Anxiety [None]
  - Depression [None]

NARRATIVE: CASE EVENT DATE: 20240416
